FAERS Safety Report 20532613 (Version 1)
Quarter: 2022Q1

REPORT INFORMATION
  Report Type: Spontaneous
  Country: US (occurrence: None)
  Receive Date: 20220228
  Receipt Date: 20220228
  Transmission Date: 20220423
  Serious: No
  Sender: FDA-Public Use
  Company Number: None

PATIENT
  Sex: Male

DRUGS (12)
  1. CAPECITABINE [Suspect]
     Active Substance: CAPECITABINE
     Indication: Rectal cancer
     Dosage: FREQUENCY : TWICE A DAY;?
     Route: 048
  2. ATORVASTATIN [Concomitant]
     Active Substance: ATORVASTATIN
  3. BACTRIM [Concomitant]
     Active Substance: SULFAMETHOXAZOLE\TRIMETHOPRIM
  4. CLOTRIMAZOLE [Concomitant]
     Active Substance: CLOTRIMAZOLE
  5. NORCO [Concomitant]
     Active Substance: ACETAMINOPHEN\HYDROCODONE BITARTRATE
  6. LACTULOSE [Concomitant]
     Active Substance: LACTULOSE
  7. EMLA [Concomitant]
     Active Substance: LIDOCAINE\PRILOCAINE
  8. LISINOPRIL [Concomitant]
     Active Substance: LISINOPRIL
  9. LOPERAMIDE [Concomitant]
     Active Substance: LOPERAMIDE
  10. MS CONTIN [Concomitant]
     Active Substance: MORPHINE SULFATE
  11. MYRBETRIQ [Concomitant]
     Active Substance: MIRABEGRON
  12. PROCHLORPERAZINE [Concomitant]
     Active Substance: PROCHLORPERAZINE

REACTIONS (3)
  - Rectal neoplasm [None]
  - Neoplasm swelling [None]
  - Infusion related reaction [None]
